FAERS Safety Report 13432560 (Version 2)
Quarter: 2017Q2

REPORT INFORMATION
  Report Type: Spontaneous
  Country: NL (occurrence: NL)
  Receive Date: 20170412
  Receipt Date: 20170503
  Transmission Date: 20170830
  Serious: Yes (Other)
  Sender: FDA-Public Use
  Company Number: NL-TEVA-596209ISR

PATIENT
  Age: 4 Year
  Sex: Male

DRUGS (3)
  1. SALBUTAMOL [Concomitant]
     Active Substance: ALBUTEROL
  2. BECLOMETASONDIPROPIONAAT PCH 100 MICROGRAM/DOSIS CFK-VRIJE INHALATOR, [Suspect]
     Active Substance: BECLOMETHASONE DIPROPIONATE
     Dosage: 200 MICROGRAM DAILY; AT THE START
     Route: 055
     Dates: start: 2011
  3. BECLOMETASONDIPROPIONAAT PCH 100 MICROGRAM/DOSIS CFK-VRIJE INHALATOR, [Suspect]
     Active Substance: BECLOMETHASONE DIPROPIONATE
     Dosage: 100 MICROGRAM DAILY; CURRENT DOSAGE, WHEN HAVING THE COMMON COLD 2DD
     Route: 055

REACTIONS (5)
  - Growth retardation [Not Recovered/Not Resolved]
  - Off label use [Recovered/Resolved]
  - Abnormal behaviour [Not Recovered/Not Resolved]
  - Eating disorder [Not Recovered/Not Resolved]
  - Upper limb fracture [Recovered/Resolved]

NARRATIVE: CASE EVENT DATE: 201503
